FAERS Safety Report 7655276-4 (Version None)
Quarter: 2011Q3

REPORT INFORMATION
  Report Type: 
  Country: None (occurrence: None)
  Receive Date: 20110728
  Receipt Date: 20110713
  Transmission Date: 20111222
  Serious: Yes (Other)
  Sender: FDA-Public Use
  Company Number: 2011BI002332

PATIENT
  Age: 52 Year
  Sex: Female
  Weight: 55 kg

DRUGS (8)
  1. ZEVELIN THERAPY (IBRITUMOMAB TIUXETAN) [Suspect]
     Indication: B-CELL LYMPHOMA
     Dosage: 26.4 MCL;1;X;IV
     Route: 042
     Dates: start: 20100813, end: 20100813
  2. RITUXIMAB (RIYTUXIMAB; REGIMEN #2 [Suspect]
     Indication: B-CELL LYMPHOMA
     Dosage: 410 MG, BID, IV
     Route: 042
     Dates: start: 20100806, end: 20100813
  3. CYCLOPHOSPHAMIDE [Suspect]
     Indication: B-CELL LYMPHOMA
     Dosage: 1167 MG, QD, IV
     Route: 042
     Dates: start: 20100128, end: 20100517
  4. ADRIAMYCIN PFS [Suspect]
     Indication: B-CELL LYMPHOMA
     Dosage: 78 MG, QD, IV
     Route: 042
     Dates: start: 20100128, end: 20100517
  5. RITUXIMAB (RITUXIMAB)REGIMEN #1 [Suspect]
     Indication: B-CELL LYMPHOMA
     Dosage: 600 MG, QD, IV
     Route: 042
     Dates: start: 20100128, end: 20100517
  6. VINCRISTINE [Suspect]
     Indication: B-CELL LYMPHOMA
     Dosage: 2 MG, QD, IV
     Route: 042
     Dates: start: 20100128, end: 20100517
  7. PREDNISONE [Suspect]
     Indication: B-CELL LYMPHOMA
     Dosage: 100MG, QD, PO
     Route: 048
     Dates: start: 20100128, end: 20100517
  8. FILGRASTIM [Concomitant]

REACTIONS (1)
  - BONE MARROW FAILURE [None]
